FAERS Safety Report 7288222-6 (Version None)
Quarter: 2011Q1

REPORT INFORMATION
  Report Type: 
  Country: None (occurrence: None)
  Receive Date: 20110211
  Receipt Date: 20110203
  Transmission Date: 20110831
  Serious: Yes (Hospitalization, Other)
  Sender: FDA-Public Use
  Company Number: US-JNJFOC-20100604135

PATIENT
  Sex: Male

DRUGS (4)
  1. LEVAQUIN [Suspect]
     Indication: URINARY TRACT INFECTION
     Route: 048
  2. PREDNISONE [Suspect]
     Indication: ILL-DEFINED DISORDER
     Route: 048
  3. CIPROFLOXACIN [Suspect]
     Indication: URINARY TRACT INFECTION
     Route: 065
  4. LEVAQUIN [Suspect]
     Route: 048

REACTIONS (2)
  - OSTEOCHONDRITIS [None]
  - TENDON RUPTURE [None]
